FAERS Safety Report 4922011-X (Version None)
Quarter: 2006Q1

REPORT INFORMATION
  Report Type: 
  Country: None (occurrence: None)
  Receive Date: 20060224
  Receipt Date: 20060215
  Transmission Date: 20060701
  Serious: Yes (Other)
  Sender: FDA-Public Use
  Company Number: DK-SANOFI-SYNTHELABO-A01200601345

PATIENT
  Age: 59 Year
  Sex: Female
  Weight: 68 kg

DRUGS (3)
  1. ELOXATIN [Suspect]
     Indication: COLON CANCER
     Route: 042
     Dates: start: 20060214, end: 20060214
  2. ELOXATIN [Suspect]
  3. FOLINIC ACID [Concomitant]
     Indication: COLON CANCER
     Route: 042
     Dates: start: 20060214, end: 20060214

REACTIONS (5)
  - CHEST DISCOMFORT [None]
  - HYPERHIDROSIS [None]
  - INFUSION RELATED REACTION [None]
  - LARYNGOSPASM [None]
  - MALAISE [None]
